FAERS Safety Report 5463267-7 (Version None)
Quarter: 2007Q3

REPORT INFORMATION
  Report Type: 
  Country: None (occurrence: None)
  Receive Date: 20070920
  Receipt Date: 20070918
  Transmission Date: 20080115
  Serious: Yes (Hospitalization)
  Sender: FDA-Public Use
  Company Number: DE-GILEAD-2007-0013218

PATIENT
  Sex: Female
  Weight: 55 kg

DRUGS (18)
  1. AMBRISENTAN [Suspect]
     Indication: PULMONARY HYPERTENSION
     Route: 048
     Dates: start: 20030611
  2. REVATIO [Concomitant]
     Dates: start: 20060915
  3. PROCORUM [Concomitant]
     Dates: start: 20060915
  4. VIANI [Concomitant]
     Dates: start: 20051220
  5. TORSEMIDE [Concomitant]
     Dates: start: 20061201
  6. AQUAPHOR [Concomitant]
     Dates: start: 20070214
  7. ASPIRIN [Concomitant]
     Dates: start: 20061201
  8. ALLOPURINOL [Concomitant]
     Dates: start: 20060912
  9. FENISTIL [Concomitant]
     Dates: start: 20060915
  10. ATARAX [Concomitant]
     Dates: start: 20070314
  11. NOVALGIN [Concomitant]
     Dates: start: 20070317
  12. DERMATOP [Concomitant]
     Dates: start: 20060215
  13. HYDROPHIL DILTIAZEM GEL [Concomitant]
     Dates: start: 20050701
  14. IRUXOL OINTMENT [Concomitant]
     Dates: start: 20061101
  15. NEXIUM [Concomitant]
     Dates: start: 20070213
  16. CIPROFLOXACIN [Concomitant]
     Dates: start: 20070818, end: 20070830
  17. CLINDAMYCIN HCL [Concomitant]
     Dates: start: 20070818, end: 20070830
  18. VALINOR [Concomitant]
     Dates: start: 20061001

REACTIONS (2)
  - C-REACTIVE PROTEIN INCREASED [None]
  - INFECTION [None]
